FAERS Safety Report 8778317 (Version 2)
Quarter: 2013Q4

REPORT INFORMATION
  Report Type: Spontaneous
  Country: US (occurrence: US)
  Receive Date: 20120911
  Receipt Date: 20131101
  Transmission Date: 20140711
  Serious: No
  Sender: FDA-Public Use
  Company Number: US-009507513-1208USA008251

PATIENT
  Sex: Male

DRUGS (2)
  1. PEGINTRON [Suspect]
     Indication: HEPATITIS C
     Dosage: UNK
     Dates: start: 20120801
  2. REBETOL [Suspect]
     Indication: HEPATITIS C
     Dosage: UNK
     Dates: start: 20120801

REACTIONS (10)
  - Vomiting [Unknown]
  - Asthenia [Unknown]
  - Apathy [Unknown]
  - Weight decreased [Unknown]
  - Personality change [Unknown]
  - Aversion [Unknown]
  - Agitation [Unknown]
  - Anxiety [Unknown]
  - Cough [Unknown]
  - Oropharyngeal pain [Unknown]
